FAERS Safety Report 18962813 (Version 1)
Quarter: 2021Q1

REPORT INFORMATION
  Report Type: Spontaneous
  Country: US (occurrence: US)
  Receive Date: 20210303
  Receipt Date: 20210303
  Transmission Date: 20210420
  Serious: Yes (Hospitalization, Other)
  Sender: FDA-Public Use
  Company Number: US-GLAXOSMITHKLINE-US2021055913

PATIENT
  Age: 59 Year
  Sex: Female

DRUGS (1)
  1. VENTOLIN HFA [Suspect]
     Active Substance: ALBUTEROL SULFATE
     Indication: CHRONIC OBSTRUCTIVE PULMONARY DISEASE
     Dosage: 2 PUFF(S), Z, 2?4 PUFFS 4?6 TIMES DAILY AND MORE WHEN NEEDED
     Route: 055

REACTIONS (11)
  - Overdose [Unknown]
  - Renal failure [Recovered/Resolved]
  - Near death experience [Unknown]
  - Blood potassium decreased [Recovered/Resolved]
  - Shock [Unknown]
  - Asthma [Recovered/Resolved]
  - Blood pressure decreased [Recovered/Resolved]
  - Hospitalisation [Recovered/Resolved]
  - Arthritis [Recovered/Resolved]
  - Wrong technique in device usage process [Unknown]
  - Dyspnoea [Recovered/Resolved]

NARRATIVE: CASE EVENT DATE: 202102
